FAERS Safety Report 7227461-7 (Version None)
Quarter: 2011Q1

REPORT INFORMATION
  Report Type: 
  Country: None (occurrence: None)
  Receive Date: 20110105
  Receipt Date: 20101230
  Transmission Date: 20110831
  Serious: Yes (Hospitalization)
  Sender: FDA-Public Use
  Company Number: GER/ UKI / 10/ 0017040

PATIENT
  Sex: Male

DRUGS (8)
  1. LAMOTRIGINE [Suspect]
     Indication: PRODUCT USED FOR UNKNOWN INDICATION
  2. LYRICA [Suspect]
     Indication: PRODUCT USED FOR UNKNOWN INDICATION
     Dosage: 50 MG, 3 D
  3. DIAZEPAM [Concomitant]
  4. KEPPRA [Suspect]
     Indication: PRODUCT USED FOR UNKNOWN INDICATION
     Dates: start: 20091231
  5. DEXAMETHASONE [Concomitant]
  6. OMEPRAPRAZOLE (OMEPRAZOLE) [Concomitant]
  7. FLOMATRA XL (TAMSULOSIN HYDROCHLORIDE) [Concomitant]
  8. SOLIFENACIN SUCCINATE (SOLIFENACIN SUCCINATE) [Concomitant]

REACTIONS (2)
  - CONVULSION [None]
  - ABNORMAL DREAMS [None]
